FAERS Safety Report 4820885-4 (Version None)
Quarter: 2005Q4

REPORT INFORMATION
  Report Type: 
  Country: None (occurrence: None)
  Receive Date: 20051103
  Receipt Date: 20050805
  Transmission Date: 20060501
  Serious: Yes (Other)
  Sender: FDA-Public Use
  Company Number: 505#1#2005-01817

PATIENT
  Age: 100 Year
  Sex: Male

DRUGS (1)
  1. DICLAC RETARD 75 (IRL) (DICLOFENAC SODIUM) [Suspect]
     Dosage: 150 MILLIGRAM
     Route: 048

REACTIONS (5)
  - ANAPHYLACTIC REACTION [None]
  - ASTHENIA [None]
  - BLOOD PRESSURE SYSTOLIC INCREASED [None]
  - MOVEMENT DISORDER [None]
  - RASH GENERALISED [None]
